FAERS Safety Report 6276954-8 (Version None)
Quarter: 2009Q3

REPORT INFORMATION
  Report Type: 
  Country: None (occurrence: None)
  Receive Date: 20090722
  Receipt Date: 20081029
  Transmission Date: 20100115
  Serious: No
  Sender: FDA-Public Use
  Company Number: US-BRISTOL-MYERS SQUIBB COMPANY-14388995

PATIENT
  Age: 73 Year
  Sex: Female
  Weight: 75 kg

DRUGS (6)
  1. COUMADIN [Suspect]
     Indication: ATRIAL FIBRILLATION
     Dates: start: 19980101
  2. TYLENOL (CAPLET) [Suspect]
     Indication: BACK PAIN
     Dosage: 1 DOSAGE FORM = 650 MG OR 1300 MG
     Route: 048
     Dates: start: 20080924
  3. HYDROCHLOROTHIAZIDE [Concomitant]
     Indication: HYPERTENSION
     Dates: start: 19980101
  4. CALAN [Concomitant]
     Indication: ATRIAL FIBRILLATION
     Dates: start: 19980101
  5. POTASSIUM CHLORIDE [Concomitant]
     Indication: MINERAL SUPPLEMENTATION
     Dates: start: 19980101
  6. TENORMIN [Concomitant]
     Dates: start: 19980101

REACTIONS (1)
  - INTERNATIONAL NORMALISED RATIO INCREASED [None]
